FAERS Safety Report 8925980 (Version 1)
Quarter: 2012Q4

REPORT INFORMATION
  Report Type: 
  Country: AR (occurrence: AR)
  Receive Date: 20121126
  Receipt Date: 20121126
  Transmission Date: 20130627
  Serious: Yes (Other)
  Sender: FDA-Public Use
  Company Number: PHHY2012AR106486

PATIENT
  Sex: Female

DRUGS (1)
  1. TEGRETOL [Suspect]
     Indication: TRIGEMINAL NEURALGIA
     Dosage: 200 mg, QD
     Dates: start: 201205, end: 201205

REACTIONS (3)
  - Herpes virus infection [Recovered/Resolved]
  - Oral discomfort [Unknown]
  - Hypersensitivity [Recovered/Resolved]
